FAERS Safety Report 25240771 (Version 1)
Quarter: 2025Q2

REPORT INFORMATION
  Report Type: Spontaneous
  Country: GB (occurrence: GB)
  Receive Date: 20250425
  Receipt Date: 20250425
  Transmission Date: 20250717
  Serious: Yes (Death, Other)
  Sender: MYLAN
  Company Number: None

PATIENT
  Age: 52 Year
  Sex: Female
  Weight: 61 kg

DRUGS (24)
  1. SERTRALINE [Suspect]
     Active Substance: SERTRALINE HYDROCHLORIDE
     Indication: Anxiety
     Route: 065
  2. SERTRALINE [Suspect]
     Active Substance: SERTRALINE HYDROCHLORIDE
  3. SERTRALINE [Suspect]
     Active Substance: SERTRALINE HYDROCHLORIDE
  4. SERTRALINE [Suspect]
     Active Substance: SERTRALINE HYDROCHLORIDE
     Route: 065
  5. SERTRALINE [Suspect]
     Active Substance: SERTRALINE HYDROCHLORIDE
     Route: 065
  6. SERTRALINE [Suspect]
     Active Substance: SERTRALINE HYDROCHLORIDE
  7. SERTRALINE [Suspect]
     Active Substance: SERTRALINE HYDROCHLORIDE
  8. SERTRALINE [Suspect]
     Active Substance: SERTRALINE HYDROCHLORIDE
     Route: 065
  9. TRAZODONE [Suspect]
     Active Substance: TRAZODONE HYDROCHLORIDE
     Indication: Sleep disorder
     Route: 065
  10. TRAZODONE [Suspect]
     Active Substance: TRAZODONE HYDROCHLORIDE
  11. TRAZODONE [Suspect]
     Active Substance: TRAZODONE HYDROCHLORIDE
  12. TRAZODONE [Suspect]
     Active Substance: TRAZODONE HYDROCHLORIDE
     Route: 065
  13. TRAZODONE [Suspect]
     Active Substance: TRAZODONE HYDROCHLORIDE
     Route: 065
  14. TRAZODONE [Suspect]
     Active Substance: TRAZODONE HYDROCHLORIDE
  15. TRAZODONE [Suspect]
     Active Substance: TRAZODONE HYDROCHLORIDE
  16. TRAZODONE [Suspect]
     Active Substance: TRAZODONE HYDROCHLORIDE
     Route: 065
  17. ZOPICLONE [Concomitant]
     Active Substance: ZOPICLONE
     Indication: Sleep disorder
  18. ZOPICLONE [Concomitant]
     Active Substance: ZOPICLONE
     Route: 065
  19. ZOPICLONE [Concomitant]
     Active Substance: ZOPICLONE
     Route: 065
  20. ZOPICLONE [Concomitant]
     Active Substance: ZOPICLONE
  21. DIAZEPAM [Concomitant]
     Active Substance: DIAZEPAM
     Indication: Feeling of relaxation
  22. DIAZEPAM [Concomitant]
     Active Substance: DIAZEPAM
     Route: 065
  23. DIAZEPAM [Concomitant]
     Active Substance: DIAZEPAM
     Route: 065
  24. DIAZEPAM [Concomitant]
     Active Substance: DIAZEPAM

REACTIONS (10)
  - Seizure [Fatal]
  - Muscle rigidity [Unknown]
  - Confusional state [Unknown]
  - Serotonin syndrome [Unknown]
  - Product prescribing issue [Unknown]
  - Staring [Unknown]
  - Abdominal pain upper [Unknown]
  - Heart rate increased [Unknown]
  - Hyperhidrosis [Unknown]
  - Abnormal loss of weight [Unknown]

NARRATIVE: CASE EVENT DATE: 20240619
